FAERS Safety Report 9553072 (Version 3)
Quarter: 2013Q4

REPORT INFORMATION
  Report Type: Spontaneous
  Country: JP (occurrence: JP)
  Receive Date: 20130925
  Receipt Date: 20131004
  Transmission Date: 20140711
  Serious: Yes (Other)
  Sender: FDA-Public Use
  Company Number: JP-PFIZER INC-2013268457

PATIENT
  Age: 61 Year
  Sex: Male
  Weight: 85 kg

DRUGS (9)
  1. FOSPHENYTOIN SODIUM [Suspect]
     Indication: CONVULSION
     Dosage: 1500 MG, 1X/DAY
     Route: 041
     Dates: start: 20130911, end: 20130911
  2. FOSPHENYTOIN SODIUM [Interacting]
     Dosage: 1500 MG, 1X/DAY
     Route: 041
     Dates: start: 20130912, end: 20130912
  3. FOSPHENYTOIN SODIUM [Interacting]
     Dosage: 750 MG, 1X/DAY
     Route: 041
     Dates: start: 20130912, end: 20130912
  4. NEXIUM [Interacting]
     Dosage: UNK
     Route: 048
  5. STIVARGA [Interacting]
     Dosage: UNK
     Route: 048
  6. FEBURIC [Concomitant]
     Dosage: UNK
     Route: 048
  7. URIEF [Concomitant]
     Dosage: UNK
     Route: 048
  8. LYRICA [Concomitant]
     Dosage: UNK
     Route: 048
  9. OXYCONTIN [Concomitant]
     Dosage: UNK
     Route: 048

REACTIONS (6)
  - Drug interaction [Recovered/Resolved]
  - Overdose [Unknown]
  - Depressed level of consciousness [Recovered/Resolved]
  - Vomiting [Recovered/Resolved]
  - Nystagmus [Recovered/Resolved]
  - Dysarthria [Recovered/Resolved]
